FAERS Safety Report 23530645 (Version 1)
Quarter: 2024Q1

REPORT INFORMATION
  Report Type: Spontaneous
  Country: DE (occurrence: DE)
  Receive Date: 20240216
  Receipt Date: 20240216
  Transmission Date: 20240410
  Serious: Yes (Other)
  Sender: FDA-Public Use
  Company Number: DE-SANOFI-01943792

PATIENT
  Age: 72 Year
  Sex: Female

DRUGS (1)
  1. KEVZARA [Suspect]
     Active Substance: SARILUMAB
     Dosage: UNK
     Dates: start: 202311

REACTIONS (3)
  - Paraplegia [Not Recovered/Not Resolved]
  - Neutropenia [Not Recovered/Not Resolved]
  - Sensory disturbance [Not Recovered/Not Resolved]
